FAERS Safety Report 22339863 (Version 1)
Quarter: 2023Q2

REPORT INFORMATION
  Report Type: Report from Study
  Country: US (occurrence: US)
  Receive Date: 20230518
  Receipt Date: 20230518
  Transmission Date: 20230722
  Serious: Yes (Hospitalization)
  Sender: FDA-Public Use
  Company Number: US-JNJFOC-20200121903

PATIENT
  Age: 15 Year
  Sex: Female
  Weight: 66 kg

DRUGS (22)
  1. ESKETAMINE [Suspect]
     Active Substance: ESKETAMINE
     Indication: Major depression
     Dates: start: 20190804, end: 20190829
  2. ESKETAMINE [Suspect]
     Active Substance: ESKETAMINE
     Indication: Suicidal ideation
  3. PLACEBO [Suspect]
     Active Substance: UNSPECIFIED INGREDIENT
     Indication: Major depression
     Route: 048
     Dates: start: 20190804, end: 20190829
  4. PLACEBO [Suspect]
     Active Substance: UNSPECIFIED INGREDIENT
     Indication: Suicidal ideation
  5. NEXPLANON [Concomitant]
     Active Substance: ETONOGESTREL
     Indication: Endometriosis
     Route: 058
     Dates: start: 20191016
  6. ADDERALL [Concomitant]
     Active Substance: AMPHETAMINE ASPARTATE\AMPHETAMINE SULFATE\DEXTROAMPHETAMINE SACCHARATE\DEXTROAMPHETAMINE SULFATE
     Indication: Attention deficit hyperactivity disorder
     Route: 048
     Dates: start: 20191218, end: 20200108
  7. TRAZODONE [Concomitant]
     Active Substance: TRAZODONE HYDROCHLORIDE
     Indication: Insomnia
     Route: 048
     Dates: start: 20191218, end: 20200108
  8. BUSPIRONE [Concomitant]
     Active Substance: BUSPIRONE HYDROCHLORIDE
     Indication: Anxiety
     Route: 048
     Dates: start: 20191218, end: 20200108
  9. ARIPIPRAZOLE [Concomitant]
     Active Substance: ARIPIPRAZOLE
     Indication: Major depression
     Route: 048
     Dates: start: 20191218, end: 20200108
  10. ARIPIPRAZOLE [Concomitant]
     Active Substance: ARIPIPRAZOLE
     Indication: Suicidal ideation
  11. DULOXETINE [Concomitant]
     Active Substance: DULOXETINE
     Indication: Major depression
     Route: 048
     Dates: start: 20191218, end: 20200108
  12. DULOXETINE [Concomitant]
     Active Substance: DULOXETINE
     Indication: Suicidal ideation
     Route: 048
     Dates: start: 20200109, end: 20200110
  13. NALTREXONE [Concomitant]
     Active Substance: NALTREXONE
     Indication: Intentional self-injury
     Route: 048
     Dates: start: 20191218, end: 20200108
  14. AMITRIPTYLINE [Concomitant]
     Active Substance: AMITRIPTYLINE
     Indication: Insomnia
     Route: 048
     Dates: start: 20200110, end: 20200208
  15. MELATONIN [Concomitant]
     Active Substance: MELATONIN
     Indication: Insomnia
     Route: 048
     Dates: start: 20200112, end: 20200208
  16. MELATONIN [Concomitant]
     Active Substance: MELATONIN
     Route: 048
     Dates: start: 20200210
  17. DOXEPIN [Concomitant]
     Active Substance: DOXEPIN
     Indication: Insomnia
     Route: 048
     Dates: start: 20200210
  18. DIPHENHYDRAMINE [Concomitant]
     Active Substance: DIPHENHYDRAMINE
     Indication: Insomnia
     Route: 048
     Dates: start: 20200216, end: 20200216
  19. PAXIL [Concomitant]
     Active Substance: PAROXETINE HYDROCHLORIDE
     Indication: Major depression
     Route: 048
     Dates: start: 20200112, end: 20200210
  20. PAXIL [Concomitant]
     Active Substance: PAROXETINE HYDROCHLORIDE
     Indication: Suicidal ideation
     Route: 048
     Dates: start: 20200211, end: 20200212
  21. PAXIL [Concomitant]
     Active Substance: PAROXETINE HYDROCHLORIDE
     Route: 048
     Dates: start: 20200213
  22. PAXIL [Concomitant]
     Active Substance: PAROXETINE HYDROCHLORIDE
     Route: 048
     Dates: start: 20200109, end: 20200111

REACTIONS (1)
  - Suicidal ideation [Recovered/Resolved]

NARRATIVE: CASE EVENT DATE: 20200108
